FAERS Safety Report 12648482 (Version 1)
Quarter: 2016Q3

REPORT INFORMATION
  Report Type: Report from Study
  Country: US (occurrence: US)
  Receive Date: 20160812
  Receipt Date: 20160812
  Transmission Date: 20161109
  Serious: Yes (Other)
  Sender: FDA-Public Use
  Company Number: US-AMGEN-USASL2016101223

PATIENT
  Age: 67 Year
  Sex: Male

DRUGS (1)
  1. ENBREL [Suspect]
     Active Substance: ETANERCEPT
     Indication: RHEUMATOID ARTHRITIS
     Dosage: 25 MG, QWK
     Route: 065

REACTIONS (5)
  - Vascular operation [Unknown]
  - Nasopharyngitis [Unknown]
  - Immune system disorder [Unknown]
  - Infection [Unknown]
  - Arthritis [Unknown]

NARRATIVE: CASE EVENT DATE: 2010
